FAERS Safety Report 24854475 (Version 1)
Quarter: 2025Q1

REPORT INFORMATION
  Report Type: Spontaneous
  Country: US (occurrence: US)
  Receive Date: 20250117
  Receipt Date: 20250117
  Transmission Date: 20250408
  Serious: No
  Sender: BIOVITRUM
  Company Number: US-BIOVITRUM-2025-US-000551

PATIENT
  Age: 90 Year
  Sex: Female

DRUGS (1)
  1. VONJO [Suspect]
     Active Substance: PACRITINIB
     Indication: Chronic kidney disease
     Route: 048

REACTIONS (1)
  - Nasopharyngitis [Recovered/Resolved]
